FAERS Safety Report 11645983 (Version 2)
Quarter: 2016Q2

REPORT INFORMATION
  Report Type: Spontaneous
  Country: US (occurrence: US)
  Receive Date: 20151020
  Receipt Date: 20160429
  Transmission Date: 20160815
  Serious: No
  Sender: FDA-Public Use
  Company Number: US-ROCHE-1614036

PATIENT
  Sex: Male
  Weight: 69.01 kg

DRUGS (1)
  1. ESBRIET [Suspect]
     Active Substance: PIRFENIDONE
     Indication: IDIOPATHIC PULMONARY FIBROSIS
     Dosage: 267 MG CAPSULES, 3 CAPS PO TID
     Route: 048
     Dates: start: 20150423

REACTIONS (6)
  - Hiccups [Unknown]
  - Abdominal discomfort [Unknown]
  - Nausea [Unknown]
  - Drug dose omission [Unknown]
  - Decreased appetite [Unknown]
  - Weight decreased [Unknown]
